FAERS Safety Report 7010832-1 (Version None)
Quarter: 2010Q3

REPORT INFORMATION
  Report Type: 
  Country: None (occurrence: None)
  Receive Date: 20100923
  Receipt Date: 20100923
  Transmission Date: 20110219
  Serious: Yes (Hospitalization)
  Sender: FDA-Public Use
  Company Number: None

PATIENT
  Sex: Female
  Weight: 80.9 kg

DRUGS (3)
  1. CISPLATIN [Suspect]
     Dosage: 117 MG
  2. ETOPOSIDE [Suspect]
     Dosage: 411 MG
  3. TOPOTECAN [Suspect]
     Dosage: 4.5 MG

REACTIONS (2)
  - FEBRILE NEUTROPENIA [None]
  - METASTATIC NEOPLASM [None]
